FAERS Safety Report 5744027-6 (Version None)
Quarter: 2008Q2

REPORT INFORMATION
  Report Type: 
  Country: None (occurrence: None)
  Receive Date: 20080516
  Receipt Date: 20080516
  Transmission Date: 20081010
  Serious: Yes (Hospitalization)
  Sender: FDA-Public Use
  Company Number: None

PATIENT
  Age: 83 Year
  Sex: Female

DRUGS (1)
  1. GLIPIZIDE [Suspect]
     Dosage: 5 MG DAILY PO
     Route: 048

REACTIONS (2)
  - ABDOMINAL PAIN [None]
  - CHEST PAIN [None]
